FAERS Safety Report 5723455-9 (Version None)
Quarter: 2008Q2

REPORT INFORMATION
  Report Type: 
  Country: None (occurrence: None)
  Receive Date: 20080430
  Receipt Date: 20080422
  Transmission Date: 20081010
  Serious: Yes (Hospitalization)
  Sender: FDA-Public Use
  Company Number: GB-AVENTIS-200813700GDDC

PATIENT
  Age: 73 Year
  Sex: Female

DRUGS (11)
  1. LANTUS [Suspect]
     Indication: DIABETES MELLITUS
     Route: 058
  2. ISOSORBIDE DINITRATE [Concomitant]
  3. ENALAPRIL [Concomitant]
  4. LEVOTHYROXINE SODIUM [Concomitant]
     Indication: HYPOTHYROIDISM
  5. ALLOPURINOL [Concomitant]
     Indication: GOUT
  6. ROSUVASTATIN [Concomitant]
  7. QUININE [Concomitant]
  8. VENTOLIN [Concomitant]
     Indication: ASTHMA
  9. VENTOLIN [Concomitant]
     Indication: CHRONIC OBSTRUCTIVE PULMONARY DISEASE
  10. SERETIDE [Concomitant]
     Indication: ASTHMA
  11. SERETIDE [Concomitant]
     Indication: CHRONIC OBSTRUCTIVE PULMONARY DISEASE

REACTIONS (4)
  - CONDITION AGGRAVATED [None]
  - LOCALISED INFECTION [None]
  - LOWER RESPIRATORY TRACT INFECTION [None]
  - RENAL DISORDER [None]
